FAERS Safety Report 10067991 (Version 1)
Quarter: 2014Q2

REPORT INFORMATION
  Report Type: Spontaneous
  Country: AR (occurrence: AR)
  Receive Date: 20140409
  Receipt Date: 20140409
  Transmission Date: 20141212
  Serious: Yes (Other)
  Sender: FDA-Public Use
  Company Number: AR-PFIZER INC-2014096428

PATIENT
  Age: 78 Year
  Sex: Female

DRUGS (1)
  1. SUTENT [Suspect]
     Indication: METASTATIC RENAL CELL CARCINOMA
     Dosage: 50MG ONCE DAILY (4 WEEKS ON AND 2 WEEKS OFF)
     Dates: start: 20131104

REACTIONS (2)
  - Intracranial aneurysm [Recovered/Resolved]
  - Intracranial pressure increased [Recovered/Resolved]
